FAERS Safety Report 18165085 (Version 1)
Quarter: 2020Q3

REPORT INFORMATION
  Report Type: Spontaneous
  Country: JP (occurrence: JP)
  Receive Date: 20200818
  Receipt Date: 20200818
  Transmission Date: 20201103
  Serious: Yes (Other)
  Sender: FDA-Public Use
  Company Number: NVSC2020JP227052

PATIENT
  Age: 11 Year
  Sex: Female
  Weight: 35 kg

DRUGS (3)
  1. NEORAL [Suspect]
     Active Substance: CYCLOSPORINE
     Dosage: 2.5 MG/KG
     Route: 065
  2. CORTRIL [Suspect]
     Active Substance: HYDROCORTISONE
     Indication: DERMATITIS ATOPIC
     Dosage: 10 MG
     Route: 065
  3. NEORAL [Suspect]
     Active Substance: CYCLOSPORINE
     Indication: DERMATITIS ATOPIC
     Dosage: 3 MG/KG (100 MG) INTO TWO DIVIDED DOSE
     Route: 065

REACTIONS (2)
  - Gingival bleeding [Recovered/Resolved]
  - Haemorrhage [Recovered/Resolved]
